FAERS Safety Report 4637081-6 (Version None)
Quarter: 2005Q2

REPORT INFORMATION
  Report Type: 
  Country: None (occurrence: None)
  Receive Date: 20050325
  Receipt Date: 20050105
  Transmission Date: 20051028
  Serious: Yes (Hospitalization)
  Sender: FDA-Public Use
  Company Number: USA040875344

PATIENT
  Age: 75 Year
  Sex: Female

DRUGS (3)
  1. FORTEO [Suspect]
     Dates: start: 20040501
  2. CALCIUM GLUCONATE [Concomitant]
  3. MULTI-VITAMIN [Concomitant]

REACTIONS (6)
  - ARTHRALGIA [None]
  - CONTUSION [None]
  - FALL [None]
  - GASTROINTESTINAL DISORDER [None]
  - LIMB INJURY [None]
  - OEDEMA PERIPHERAL [None]
